FAERS Safety Report 12708360 (Version 1)
Quarter: 2016Q3

REPORT INFORMATION
  Report Type: Report from Study
  Country: DE (occurrence: DE)
  Receive Date: 20160901
  Receipt Date: 20160901
  Transmission Date: 20161109
  Serious: Yes (Hospitalization, Other)
  Sender: FDA-Public Use
  Company Number: DE-ABBVIE-16K-062-1613411-00

PATIENT
  Age: 51 Year
  Sex: Female
  Weight: 74 kg

DRUGS (1)
  1. HUMIRA [Suspect]
     Active Substance: ADALIMUMAB
     Indication: RHEUMATOID ARTHRITIS
     Route: 058
     Dates: end: 201403

REACTIONS (8)
  - Pulmonary embolism [Unknown]
  - Rheumatic disorder [Unknown]
  - Pulmonary infarction [Unknown]
  - Dyspnoea [Unknown]
  - Adenocarcinoma of colon [Unknown]
  - Pneumonia [Unknown]
  - Pulmonary artery stenosis [Unknown]
  - Pneumonitis [Unknown]

NARRATIVE: CASE EVENT DATE: 201405
